FAERS Safety Report 21750024 (Version 1)
Quarter: 2022Q4

REPORT INFORMATION
  Report Type: Spontaneous
  Country: US (occurrence: US)
  Receive Date: 20221219
  Receipt Date: 20221219
  Transmission Date: 20230112
  Serious: No
  Sender: FDA-Public Use
  Company Number: US-BAYER-2022P029030

PATIENT
  Age: 61 Year
  Sex: Female
  Weight: 77.1 kg

DRUGS (2)
  1. ADEMPAS [Suspect]
     Active Substance: RIOCIGUAT
     Dosage: 0.5 MG, TID
  2. TREPROSTINIL [Suspect]
     Active Substance: TREPROSTINIL
     Dosage: 10 MG/ML
     Route: 058
     Dates: start: 20210312

REACTIONS (7)
  - Nausea [None]
  - Diarrhoea [None]
  - Vomiting [None]
  - Headache [None]
  - Fluid retention [None]
  - Decreased appetite [None]
  - Weight decreased [None]
